FAERS Safety Report 6298896-4 (Version None)
Quarter: 2009Q3

REPORT INFORMATION
  Report Type: 
  Country: None (occurrence: None)
  Receive Date: 20090804
  Receipt Date: 20090723
  Transmission Date: 20100115
  Serious: Yes (Other)
  Sender: FDA-Public Use
  Company Number: 2009246021

PATIENT
  Age: 42 Year
  Sex: Female

DRUGS (1)
  1. DALTEPARIN SODIUM [Suspect]
     Dosage: SUBCUTANEOUS
     Route: 058

REACTIONS (3)
  - DRUG EXPOSURE DURING PREGNANCY [None]
  - INJECTION SITE RECALL REACTION [None]
  - INJECTION SITE URTICARIA [None]
